FAERS Safety Report 7434652-9 (Version None)
Quarter: 2011Q2

REPORT INFORMATION
  Report Type: 
  Country: None (occurrence: None)
  Receive Date: 20110414
  Receipt Date: 20110401
  Transmission Date: 20111010
  Serious: Yes (Hospitalization)
  Sender: FDA-Public Use
  Company Number: JP-1185399

PATIENT
  Age: 59 Year
  Sex: Male

DRUGS (4)
  1. BIOFERMIN [Concomitant]
  2. RHYTHMY [Concomitant]
  3. TIMOLOL MALEATE [Suspect]
     Indication: OCULAR HYPERTENSION
     Dosage: 1 GTT BID OU,OPHTHALMIC
     Route: 047
     Dates: start: 20101210, end: 20110311
  4. AZOPT [Suspect]
     Indication: OCULAR HYPERTENSION
     Dosage: 1 GTT BID  OU, OPHTHALMIC
     Route: 047
     Dates: start: 20101211, end: 20110311

REACTIONS (1)
  - PRINZMETAL ANGINA [None]
